FAERS Safety Report 9613512 (Version 1)
Quarter: 2013Q4

REPORT INFORMATION
  Report Type: Spontaneous
  Country: FR (occurrence: FR)
  Receive Date: 20131010
  Receipt Date: 20131010
  Transmission Date: 20140711
  Serious: Yes (Other)
  Sender: FDA-Public Use
  Company Number: FR-MYLANLABS-2013S1021895

PATIENT
  Age: 68 Year
  Sex: Male
  Weight: 75 kg

DRUGS (1)
  1. ENALAPRIL [Suspect]
     Indication: PRODUCT USED FOR UNKNOWN INDICATION
     Route: 048
     Dates: start: 201304

REACTIONS (4)
  - Urinary tract disorder [Recovering/Resolving]
  - Blood pressure increased [Recovering/Resolving]
  - Myalgia [Unknown]
  - Pruritus [Unknown]
